FAERS Safety Report 22217970 (Version 1)
Quarter: 2023Q2

REPORT INFORMATION
  Report Type: Spontaneous
  Country: US (occurrence: US)
  Receive Date: 20230417
  Receipt Date: 20230417
  Transmission Date: 20230722
  Serious: Yes (Other)
  Sender: FDA-Public Use
  Company Number: US-002147023-NVSC2023US084224

PATIENT
  Age: 56 Year
  Sex: Female

DRUGS (2)
  1. CEFTRIAXONE [Suspect]
     Active Substance: CEFTRIAXONE
     Indication: Upper respiratory tract infection
     Dosage: 1 G ONCE
     Route: 030
  2. XYLOCAINE [Suspect]
     Active Substance: LIDOCAINE HYDROCHLORIDE
     Indication: Product used for unknown indication
     Dosage: UNK ONCE
     Route: 030

REACTIONS (4)
  - Anaphylactic reaction [Recovered/Resolved]
  - Increased bronchial secretion [Recovered/Resolved]
  - Seizure [Recovered/Resolved]
  - Foaming at mouth [Recovered/Resolved]
